FAERS Safety Report 15179782 (Version 1)
Quarter: 2018Q3

REPORT INFORMATION
  Report Type: Spontaneous
  Country: US (occurrence: US)
  Receive Date: 20180723
  Receipt Date: 20180723
  Transmission Date: 20181010
  Serious: No
  Sender: FDA-Public Use
  Company Number: US-TEVA-2018-US-929743

PATIENT
  Age: 16 Year
  Sex: Female

DRUGS (2)
  1. NORTRIPTYLINE [Suspect]
     Active Substance: NORTRIPTYLINE
     Dates: start: 20180717
  2. NORTRIPTYLINE [Suspect]
     Active Substance: NORTRIPTYLINE
     Indication: PAIN
     Route: 048
     Dates: start: 20180717

REACTIONS (2)
  - Chest pain [Recovered/Resolved]
  - Pruritus [Recovered/Resolved]

NARRATIVE: CASE EVENT DATE: 20180717
